FAERS Safety Report 7823811-9 (Version None)
Quarter: 2011Q4

REPORT INFORMATION
  Report Type: 
  Country: None (occurrence: None)
  Receive Date: 20111019
  Receipt Date: 20111013
  Transmission Date: 20120403
  Serious: Yes (Other)
  Sender: FDA-Public Use
  Company Number: GB-ASTELLAS-2011EU006907

PATIENT
  Sex: Female
  Weight: 54.5 kg

DRUGS (9)
  1. ACETAMINOPHEN WITH PROPOXYPHENE HCL TAB [Concomitant]
     Dosage: UNK
     Route: 065
  2. MICRONOR [Concomitant]
     Dosage: 350 UG, UNKNOWN/D
     Route: 065
  3. OMEPRAZOLE [Suspect]
     Dosage: 20 MG, UID/QD
  4. VESICARE [Suspect]
     Indication: HYPERTONIC BLADDER
     Dosage: UNK
     Route: 048
     Dates: start: 20101216, end: 20110310
  5. DIAZEPAM [Concomitant]
     Dosage: 2 MG, BID
     Route: 065
  6. VENTOLIN [Concomitant]
     Dosage: UNK
     Route: 065
  7. TEMAZEPAM [Concomitant]
     Dosage: 5 MG, UID/QD
     Route: 065
  8. RHINOLAST [Concomitant]
     Dosage: 140 UG, UNKNOWN/D
     Route: 065
  9. ACETAMINOPHEN AND CODEINE PHOSPHATE [Concomitant]
     Dosage: UNK
     Route: 065

REACTIONS (6)
  - VISION BLURRED [None]
  - SKIN BURNING SENSATION [None]
  - DRY EYE [None]
  - PALPITATIONS [None]
  - SKIN DISORDER [None]
  - ALOPECIA [None]
